FAERS Safety Report 6984563-8 (Version None)
Quarter: 2010Q3

REPORT INFORMATION
  Report Type: 
  Country: None (occurrence: None)
  Receive Date: 20100915
  Receipt Date: 20100903
  Transmission Date: 20110219
  Serious: Yes (Other)
  Sender: FDA-Public Use
  Company Number: IE-PFIZER INC-2010095740

PATIENT
  Age: 54 Year
  Sex: Female

DRUGS (4)
  1. LINEZOLID [Suspect]
     Indication: POSTOPERATIVE WOUND INFECTION
     Dosage: 600 MG, 2X/DAY
     Route: 042
     Dates: start: 20100720, end: 20100722
  2. PARACETAMOL [Concomitant]
     Indication: BACK PAIN
     Route: 048
  3. OMEPRAZOLE [Concomitant]
     Indication: BACK PAIN
     Route: 048
  4. DIHYDROCODEINE [Concomitant]
     Indication: BACK PAIN
     Route: 048

REACTIONS (2)
  - HALLUCINATION, VISUAL [None]
  - PARAESTHESIA [None]
